FAERS Safety Report 8918831 (Version 1)
Quarter: 2012Q4

REPORT INFORMATION
  Report Type: Spontaneous
  Country: US (occurrence: None)
  Receive Date: 20121115
  Receipt Date: 20121115
  Transmission Date: 20130627
  Serious: Yes (Life-Threatening, Hospitalization)
  Sender: FDA-Public Use
  Company Number: None

PATIENT
  Age: 66 Year
  Sex: Female
  Weight: 74 kg

DRUGS (1)
  1. PAZOPANIB [Suspect]

REACTIONS (6)
  - Aphasia [None]
  - Muscular weakness [None]
  - Muscular weakness [None]
  - Cerebrovascular accident [None]
  - Cerebral infarction [None]
  - Hemiplegia [None]
